FAERS Safety Report 19895949 (Version 1)
Quarter: 2021Q3

REPORT INFORMATION
  Report Type: Spontaneous
  Country: NO (occurrence: NO)
  Receive Date: 20210929
  Receipt Date: 20210929
  Transmission Date: 20211014
  Serious: Yes (Life-Threatening)
  Sender: FDA-Public Use
  Company Number: NO-ACCORD-239699

PATIENT
  Age: 66 Year
  Sex: Male

DRUGS (2)
  1. FLUOROURACIL ACCORD [Suspect]
     Active Substance: FLUOROURACIL
     Indication: COLON CANCER
     Dosage: STRENGTH:50, 990 MG X 2 FOR EACH TREATMENT CYCLE. GIVEN AT TOTAL OF FIVE TREATMENT CYCLES.
     Route: 042
     Dates: start: 20210531, end: 20210805
  2. OXALIPLATIN SUN [Suspect]
     Active Substance: OXALIPLATIN
     Indication: COLON CANCER
     Dosage: STRENGTH: 5, 168 MG X 2 FOR EACH TREATMENT CYCLE. GIVEN AT TOTAL OF FIVE TREATMENT CYCLES.
     Route: 042
     Dates: start: 20210531, end: 20210727

REACTIONS (5)
  - Renal failure [Recovering/Resolving]
  - Haemolysis [Recovered/Resolved]
  - Thrombocytopenia [Recovering/Resolving]
  - Acute hepatic failure [Recovering/Resolving]
  - Atypical haemolytic uraemic syndrome [Recovering/Resolving]

NARRATIVE: CASE EVENT DATE: 20210727
